FAERS Safety Report 9051823 (Version 1)
Quarter: 2013Q1

REPORT INFORMATION
  Report Type: Spontaneous
  Country: US (occurrence: US)
  Receive Date: 20130207
  Receipt Date: 20130207
  Transmission Date: 20140127
  Serious: Yes (Hospitalization)
  Sender: FDA-Public Use
  Company Number: US-BAYER-2013-014002

PATIENT
  Age: 22 Year
  Sex: Female
  Weight: 79.9 kg

DRUGS (8)
  1. YASMIN [Suspect]
  2. ULTRAM [Concomitant]
     Indication: PAIN
     Dosage: 50 MG, UNK
  3. PHENERGAN AND CHLORAL HYDRATE [Concomitant]
  4. ZOSYN [Concomitant]
  5. MORPHINE [Concomitant]
     Indication: ANALGESIC THERAPY
  6. NORCO [Concomitant]
     Indication: ANALGESIC THERAPY
  7. HISTUSSIN HC [Concomitant]
  8. FEXOFENADINE HYDROCHLORIDE [Concomitant]
     Indication: RHINORRHOEA

REACTIONS (2)
  - Cholecystitis chronic [None]
  - Pulmonary embolism [None]
